FAERS Safety Report 9466615 (Version 2)
Quarter: 2013Q3

REPORT INFORMATION
  Report Type: Report from Study
  Country: GB (occurrence: GB)
  Receive Date: 20130820
  Receipt Date: 20130820
  Transmission Date: 20140515
  Serious: Yes (Hospitalization, Other)
  Sender: FDA-Public Use
  Company Number: PHHY2013GB009412

PATIENT
  Age: 80 Year
  Sex: Male
  Weight: 86 kg

DRUGS (4)
  1. RANIBIZUMAB [Suspect]
     Dosage: 0.5 MG, UNK
     Dates: start: 20120610
  2. RANIBIZUMAB [Suspect]
     Dosage: 0.5 MG, UNK
     Dates: start: 20120809
  3. WARFARIN [Suspect]
     Indication: ANTICOAGULANT THERAPY
     Dosage: 25 MG, UNK
     Route: 048
     Dates: end: 20130127
  4. WARFARIN [Suspect]
     Dosage: 25 MG, UNK
     Route: 048
     Dates: start: 20130128

REACTIONS (3)
  - Accidental overdose [Recovering/Resolving]
  - Age-related macular degeneration [Not Recovered/Not Resolved]
  - International normalised ratio increased [Unknown]
